FAERS Safety Report 6816501-2 (Version None)
Quarter: 2010Q3

REPORT INFORMATION
  Report Type: 
  Country: None (occurrence: None)
  Receive Date: 20100705
  Receipt Date: 20100629
  Transmission Date: 20110219
  Serious: Yes (Death)
  Sender: FDA-Public Use
  Company Number: US-BRISTOL-MYERS SQUIBB COMPANY-15172745

PATIENT
  Age: 42 Year
  Sex: Female

DRUGS (30)
  1. DASATINIB [Suspect]
     Indication: COLORECTAL CANCER
     Dates: start: 20100324, end: 20100626
  2. CETUXIMAB [Suspect]
     Indication: COLORECTAL CANCER
  3. OXALIPLATIN [Suspect]
     Indication: COLORECTAL CANCER
  4. FLUOROURACIL [Suspect]
     Indication: COLORECTAL CANCER
  5. LEUCOVORIN CALCIUM [Suspect]
     Indication: COLORECTAL CANCER
  6. ADVIL LIQUI-GELS [Concomitant]
     Indication: PAIN
     Route: 048
     Dates: start: 20100201
  7. ADVIL LIQUI-GELS [Concomitant]
     Indication: PYREXIA
     Route: 048
     Dates: start: 20100201
  8. BENTYL [Concomitant]
     Indication: ABDOMINAL PAIN
     Route: 048
     Dates: start: 20090101
  9. CALCIUM + VITAMIN D [Concomitant]
     Route: 048
     Dates: start: 20090101
  10. COLACE [Concomitant]
     Indication: CONSTIPATION
     Route: 048
     Dates: start: 20090101
  11. VITAMINS [Concomitant]
     Route: 048
     Dates: start: 20090101
  12. LISINOPRIL [Concomitant]
     Indication: HYPERTENSION
     Route: 048
     Dates: start: 20040101
  13. M.V.I. [Concomitant]
  14. PEPCID [Concomitant]
     Indication: FLATULENCE
     Route: 048
     Dates: start: 20090101
  15. POTASSIUM [Concomitant]
     Route: 048
     Dates: start: 20090301
  16. PROZAC [Concomitant]
     Indication: ANXIETY
     Route: 048
     Dates: start: 20040101
  17. NEURONTIN [Concomitant]
     Indication: PAIN IN EXTREMITY
     Route: 048
     Dates: start: 20100201
  18. MS CONTIN [Concomitant]
     Indication: PAIN
     Route: 048
     Dates: start: 20100201
  19. DILAUDID [Concomitant]
     Indication: PAIN
     Route: 048
     Dates: start: 20100201
  20. ANUSOL PLUS SUPPOSITORY [Concomitant]
     Indication: PROCTALGIA
     Route: 048
     Dates: start: 20100101
  21. HYDROCHLOROTHIAZIDE [Concomitant]
     Indication: HYPERTENSION
     Dosage: 1DF=20/12.5
     Route: 048
     Dates: start: 20090101
  22. MIRALAX [Concomitant]
     Indication: CONSTIPATION
     Route: 048
     Dates: start: 20090101
  23. ZOFRAN [Concomitant]
     Indication: PROPHYLAXIS OF NAUSEA AND VOMITING
     Route: 042
     Dates: start: 20100324
  24. DEXAMETHASONE [Concomitant]
     Indication: PROPHYLAXIS OF NAUSEA AND VOMITING
     Dosage: ALSO PO BID-4MG FROM 7APR10
     Route: 042
     Dates: start: 20100324
  25. BENADRYL [Concomitant]
     Indication: PROPHYLAXIS OF NAUSEA AND VOMITING
     Route: 042
     Dates: start: 20100324
  26. COMPAZINE [Concomitant]
     Indication: NAUSEA
     Route: 042
     Dates: start: 20100407
  27. LOMOTIL [Concomitant]
     Indication: DIARRHOEA
     Route: 048
     Dates: start: 20100514
  28. AUGMENTIN '125' [Concomitant]
     Indication: PNEUMONITIS
     Route: 048
     Dates: start: 20100602
  29. MEDROL [Concomitant]
     Indication: PNEUMONITIS
     Route: 048
     Dates: start: 20100602
  30. OPIUM TINCTURE [Concomitant]
     Indication: DIARRHOEA
     Route: 048
     Dates: start: 20100602

REACTIONS (1)
  - LOWER GASTROINTESTINAL HAEMORRHAGE [None]
